FAERS Safety Report 6474497-X (Version None)
Quarter: 2009Q4

REPORT INFORMATION
  Report Type: 
  Country: None (occurrence: None)
  Receive Date: 20091125
  Receipt Date: 20091116
  Transmission Date: 20100525
  Serious: Yes (Other)
  Sender: FDA-Public Use
  Company Number: WAES 0911USA02356

PATIENT
  Age: 63 Year
  Sex: Female

DRUGS (5)
  1. FOSAMAX [Suspect]
     Indication: OSTEOPOROSIS
     Dosage: 35 MG/WKY PO
     Route: 048
     Dates: start: 20071019, end: 20080729
  2. HALCION [Concomitant]
  3. MOBIC [Concomitant]
  4. MUCOSTA [Concomitant]
  5. PURSENNID [Concomitant]

REACTIONS (1)
  - GASTRIC CANCER [None]
